FAERS Safety Report 23911895 (Version 2)
Quarter: 2024Q2

REPORT INFORMATION
  Report Type: Spontaneous
  Country: JP (occurrence: JP)
  Receive Date: 20240528
  Receipt Date: 20240617
  Transmission Date: 20240717
  Serious: Yes (Hospitalization)
  Sender: FDA-Public Use
  Company Number: JP-DSJP-DSJ-2024-122676

PATIENT
  Age: 82 Year
  Sex: Male
  Weight: 41 kg

DRUGS (5)
  1. EDOXABAN TOSYLATE [Suspect]
     Active Substance: EDOXABAN TOSYLATE
     Indication: Atrial fibrillation
     Dosage: 15 MG, QD, AFTER BREAKFAST
     Route: 048
  2. PILSICAINIDE HYDROCHLORIDE HEMIHYDRATE [Suspect]
     Active Substance: PILSICAINIDE HYDROCHLORIDE HEMIHYDRATE
     Indication: Atrial fibrillation
     Dosage: 50 MG, BID, AFTER BREAKFAST AND DINNER
     Route: 048
  3. EMPAGLIFLOZIN\LINAGLIPTIN [Suspect]
     Active Substance: EMPAGLIFLOZIN\LINAGLIPTIN
     Indication: Type 2 diabetes mellitus
     Dosage: 1 DF, QD, AFTER BREAKFAST
     Route: 048
  4. METFORMIN HYDROCHLORIDE [Suspect]
     Active Substance: METFORMIN HYDROCHLORIDE
     Indication: Type 2 diabetes mellitus
     Dosage: 250 MG, BID, AFTER BREAKFAST AND DINNER
     Route: 048
  5. AMLODIPINE BESYLATE\AZILSARTAN [Concomitant]
     Active Substance: AMLODIPINE BESYLATE\AZILSARTAN
     Indication: Hypertension
     Dosage: 1 DF, QD, AFTER BREAKFAST
     Route: 048

REACTIONS (4)
  - Decreased appetite [Recovering/Resolving]
  - Dizziness [Recovering/Resolving]
  - Dizziness [Recovering/Resolving]
  - Hypoglycaemia [Recovering/Resolving]
